FAERS Safety Report 10616846 (Version 5)
Quarter: 2015Q2

REPORT INFORMATION
  Report Type: Report from Study
  Country: CA (occurrence: CA)
  Receive Date: 20141201
  Receipt Date: 20150417
  Transmission Date: 20150821
  Serious: Yes (Other)
  Sender: FDA-Public Use
  Company Number: CA-SA-2014SA158722

PATIENT
  Age: 46 Year
  Sex: Male
  Weight: 70 kg

DRUGS (3)
  1. LEMTRADA [Suspect]
     Active Substance: ALEMTUZUMAB
     Indication: MULTIPLE SCLEROSIS
     Route: 041
     Dates: start: 20141110
  2. VESICARE [Concomitant]
     Active Substance: SOLIFENACIN SUCCINATE
     Indication: BLADDER DYSFUNCTION
     Route: 048
  3. AMANTADINE [Concomitant]
     Active Substance: AMANTADINE
     Indication: MULTIPLE SCLEROSIS
     Route: 048

REACTIONS (14)
  - Arthralgia [Recovered/Resolved]
  - Dizziness [Recovered/Resolved]
  - Food intolerance [Not Recovered/Not Resolved]
  - Pruritus [Recovered/Resolved]
  - Erythema [Unknown]
  - Diarrhoea [Not Recovered/Not Resolved]
  - Throat irritation [Recovered/Resolved]
  - Immobile [Recovering/Resolving]
  - Urinary incontinence [Recovered/Resolved]
  - Slow speech [Recovering/Resolving]
  - Abdominal distension [Recovered/Resolved]
  - Fatigue [Recovered/Resolved]
  - Urticaria [Recovered/Resolved]
  - Headache [Recovered/Resolved]

NARRATIVE: CASE EVENT DATE: 201411
